FAERS Safety Report 9802803 (Version 1)
Quarter: 2013Q4

REPORT INFORMATION
  Report Type: Spontaneous
  Country: US (occurrence: None)
  Receive Date: 20131231
  Receipt Date: 20131231
  Transmission Date: 20140711
  Serious: Yes (Other)
  Sender: FDA-Public Use
  Company Number: SYM-2013-14449

PATIENT
  Sex: Male

DRUGS (8)
  1. XENAZINE (TETRABENAZINE) (TABLET) (TETRABENAZINE) [Suspect]
     Indication: TARDIVE DYSKINESIA
     Dosage: 1 + 1/2 TABLETS, 3 IN 1 D, ORAL
     Route: 048
  2. HYDROXYZINE PAMOATE (HYDROXYZINE EMBONATE) (50 MILLIGRAM) (HYDROXYZINE EMBONATE) [Concomitant]
  3. ISOSORBIDE (ISOSORBIDE) (120 MILLIGRAM) (ISOSORBIDE) [Concomitant]
  4. SIMVASTATIN (SIMVASTATIN) (40 MILLIGRAM) (SIMVASTATIN) [Concomitant]
  5. CARBIDOPA/LEVODOPA 25/100 (SINEMET) (LEVODOPA, CARBIDOPA) [Concomitant]
  6. QUETTIAPINE FUMARATE (QUETIAPINE FUMARATE) (25 MILLIGRAM) (QUETIAPINE FUMARATE) [Concomitant]
  7. BABY ASPIRIN (ACETYLSALICYLIC ACID) (ACETYLSALICYLIC ACID) [Concomitant]
  8. FOLIC ACID (FOLIC ACID) (800 MICROGRAM) (FOLIC ACID) [Concomitant]

REACTIONS (7)
  - Tourette^s disorder [None]
  - Tremor [None]
  - Musculoskeletal stiffness [None]
  - Restlessness [None]
  - Tardive dyskinesia [None]
  - Tongue disorder [None]
  - Speech disorder [None]
